FAERS Safety Report 4804749-8 (Version None)
Quarter: 2005Q4

REPORT INFORMATION
  Report Type: 
  Country: None (occurrence: None)
  Receive Date: 20051017
  Receipt Date: 20050909
  Transmission Date: 20060501
  Serious: Yes (Death)
  Sender: FDA-Public Use
  Company Number: 2005-132313-NL

PATIENT
  Age: 72 Year
  Sex: Male

DRUGS (19)
  1. MIRTAZAPINE [Suspect]
     Dosage: 30 MG/60 MG ORAL
     Route: 048
     Dates: start: 20040210, end: 20040215
  2. MIRTAZAPINE [Suspect]
     Dosage: 30 MG/60 MG ORAL
     Route: 048
     Dates: start: 20040216, end: 20040411
  3. HALOPERIDOL [Suspect]
     Dosage: 3 MG/2 MG/1 MG/2 MG/4 ORAL
     Route: 048
     Dates: start: 20040210, end: 20040226
  4. HALOPERIDOL [Suspect]
     Dosage: 3 MG/2 MG/1 MG/2 MG/4 ORAL
     Route: 048
     Dates: start: 20040226, end: 20040301
  5. HALOPERIDOL [Suspect]
     Dosage: 3 MG/2 MG/1 MG/2 MG/4 ORAL
     Route: 048
     Dates: start: 20040301, end: 20040307
  6. HALOPERIDOL [Suspect]
     Dosage: 3 MG/2 MG/1 MG/2 MG/4 ORAL
     Route: 048
     Dates: start: 20040307, end: 20040329
  7. HALOPERIDOL [Suspect]
     Dosage: 3 MG/2 MG/1 MG/2 MG/4 ORAL
     Route: 048
     Dates: start: 20040401, end: 20040411
  8. ESCITALOPRAM OXALATE [Suspect]
     Dosage: 5 MG/10 MG/15 MG  ORAL
     Route: 048
     Dates: start: 20040226, end: 20040303
  9. ESCITALOPRAM OXALATE [Suspect]
     Dosage: 5 MG/10 MG/15 MG  ORAL
     Route: 048
     Dates: start: 20040303, end: 20040325
  10. ESCITALOPRAM OXALATE [Suspect]
     Dosage: 5 MG/10 MG/15 MG  ORAL
     Route: 048
     Dates: start: 20040325, end: 20040411
  11. LORAZEPAM [Suspect]
     Dosage: 1 MG/3 MG/2 MG/1.5 MG/0.5 MG/1.5 MG ORAL
     Route: 048
     Dates: start: 20040208, end: 20040210
  12. LORAZEPAM [Suspect]
     Dosage: 1 MG/3 MG/2 MG/1.5 MG/0.5 MG/1.5 MG ORAL
     Route: 048
     Dates: start: 20040210, end: 20040216
  13. LORAZEPAM [Suspect]
     Dosage: 1 MG/3 MG/2 MG/1.5 MG/0.5 MG/1.5 MG ORAL
     Route: 048
     Dates: start: 20040216, end: 20040219
  14. LORAZEPAM [Suspect]
     Dosage: 1 MG/3 MG/2 MG/1.5 MG/0.5 MG/1.5 MG ORAL
     Route: 048
     Dates: start: 20040219, end: 20040226
  15. LORAZEPAM [Suspect]
     Dosage: 1 MG/3 MG/2 MG/1.5 MG/0.5 MG/1.5 MG ORAL
     Route: 048
     Dates: start: 20040226, end: 20040301
  16. LORAZEPAM [Suspect]
     Dosage: 1 MG/3 MG/2 MG/1.5 MG/0.5 MG/1.5 MG ORAL
     Route: 048
     Dates: start: 20040329, end: 20040411
  17. PARAGAR [Concomitant]
  18. COSAAR PLUS [Concomitant]
  19. ATORVASTATIN CALCIUM [Concomitant]

REACTIONS (6)
  - ANXIETY [None]
  - COMPLETED SUICIDE [None]
  - DEPRESSIVE SYMPTOM [None]
  - RESTLESSNESS [None]
  - SELECTIVE MUTISM [None]
  - SLEEP DISORDER [None]
